FAERS Safety Report 9069266 (Version 1)
Quarter: 2013Q1

REPORT INFORMATION
  Report Type: Spontaneous
  Country: GB (occurrence: GB)
  Receive Date: 20130215
  Receipt Date: 20130215
  Transmission Date: 20140127
  Serious: Yes (Congenital Anomaly, Other)
  Sender: FDA-Public Use
  Company Number: GB-JNJFOC-20130200462

PATIENT
  Sex: 0

DRUGS (9)
  1. HALOPERIDOL [Suspect]
     Indication: MATERNAL EXPOSURE BEFORE PREGNANCY
     Route: 050
  2. DEPIXOL [Suspect]
     Indication: MATERNAL EXPOSURE BEFORE PREGNANCY
     Route: 050
  3. DISIPAL [Suspect]
     Indication: MATERNAL EXPOSURE BEFORE PREGNANCY
     Route: 050
  4. ISTIN [Suspect]
     Indication: MATERNAL EXPOSURE BEFORE PREGNANCY
     Route: 050
  5. VALIUM [Suspect]
     Indication: MATERNAL EXPOSURE BEFORE PREGNANCY
     Route: 050
  6. UNKNOWN MEDICATION [Suspect]
     Indication: MATERNAL EXPOSURE BEFORE PREGNANCY
     Route: 050
  7. KEMADRIN [Suspect]
     Indication: MATERNAL EXPOSURE BEFORE PREGNANCY
     Route: 050
  8. SURMONTIL [Suspect]
     Indication: MATERNAL EXPOSURE BEFORE PREGNANCY
     Route: 050
  9. NORMOXIN [Suspect]
     Indication: MATERNAL EXPOSURE BEFORE PREGNANCY
     Route: 050

REACTIONS (5)
  - Congenital anomaly [Unknown]
  - Brain neoplasm [Unknown]
  - Hydrocephalus [Unknown]
  - Learning disorder [Unknown]
  - Maternal drugs affecting foetus [None]
